FAERS Safety Report 13358251 (Version 1)
Quarter: 2017Q1

REPORT INFORMATION
  Report Type: Spontaneous
  Country: FR (occurrence: FR)
  Receive Date: 20170322
  Receipt Date: 20170322
  Transmission Date: 20170429
  Serious: Yes (Hospitalization, Other)
  Sender: FDA-Public Use
  Company Number: FR-ROCHE-1908503

PATIENT
  Age: 78 Year
  Sex: Male

DRUGS (13)
  1. FOLIC ACID. [Concomitant]
     Active Substance: FOLIC ACID
  2. MABTHERA [Suspect]
     Active Substance: RITUXIMAB
     Indication: ACQUIRED HAEMOPHILIA
     Dosage: 50MG AT D1 AND 40MG AT D14
     Route: 042
     Dates: start: 20161024, end: 20161108
  3. PANTOPRAZOLE SODIUM. [Suspect]
     Active Substance: PANTOPRAZOLE SODIUM
     Indication: RECTAL HAEMORRHAGE
     Route: 048
     Dates: start: 20161024, end: 20161231
  4. ENDOXAN [Suspect]
     Active Substance: CYCLOPHOSPHAMIDE
     Indication: ACQUIRED HAEMOPHILIA
     Dosage: CYCLE 1
     Route: 042
     Dates: start: 20161022
  5. ENDOXAN [Suspect]
     Active Substance: CYCLOPHOSPHAMIDE
     Dosage: CYCLE 2
     Route: 042
     Dates: start: 20161105
  6. ENDOXAN [Suspect]
     Active Substance: CYCLOPHOSPHAMIDE
     Dosage: CYCLE 4
     Route: 042
     Dates: start: 20161221
  7. FORTIMEL [Concomitant]
     Active Substance: DIETARY SUPPLEMENT
  8. WELLVONE [Concomitant]
     Active Substance: ATOVAQUONE
  9. BACTRIM [Suspect]
     Active Substance: SULFAMETHOXAZOLE\TRIMETHOPRIM
     Indication: PROPHYLAXIS
     Dosage: TABLET 400/80MG
     Route: 048
     Dates: start: 20161023, end: 20161230
  10. CORTANCYL [Concomitant]
     Active Substance: PREDNISONE
  11. DAFALGAN [Concomitant]
     Active Substance: ACETAMINOPHEN
  12. ENDOXAN [Suspect]
     Active Substance: CYCLOPHOSPHAMIDE
     Dosage: CYCLE 3
     Route: 042
     Dates: start: 20161129
  13. XATRAL [Concomitant]
     Active Substance: ALFUZOSIN

REACTIONS (3)
  - Off label use [Unknown]
  - Agranulocytosis [Recovered/Resolved]
  - Product use issue [Unknown]

NARRATIVE: CASE EVENT DATE: 20161228
